FAERS Safety Report 19925880 (Version 1)
Quarter: 2021Q4

REPORT INFORMATION
  Report Type: Spontaneous
  Country: CN (occurrence: CN)
  Receive Date: 20211006
  Receipt Date: 20211006
  Transmission Date: 20220304
  Serious: Yes (Other)
  Sender: FDA-Public Use
  Company Number: CN-PFIZER INC-202101266009

PATIENT
  Age: 77 Year
  Sex: Female
  Weight: 60 kg

DRUGS (13)
  1. SOLU-MEDROL [Suspect]
     Active Substance: METHYLPREDNISOLONE SODIUM SUCCINATE
     Indication: Polymyositis
     Dosage: 60 MG, 1X/DAY
     Route: 041
     Dates: start: 20210831, end: 20210904
  2. SOLU-MEDROL [Suspect]
     Active Substance: METHYLPREDNISOLONE SODIUM SUCCINATE
     Dosage: 40 MG, 2X/DAY
     Route: 041
     Dates: start: 20210906, end: 20210910
  3. SOLU-MEDROL [Suspect]
     Active Substance: METHYLPREDNISOLONE SODIUM SUCCINATE
     Dosage: 500 MG, 1X/DAY
     Route: 041
     Dates: start: 20210917, end: 20210917
  4. SOLU-MEDROL [Suspect]
     Active Substance: METHYLPREDNISOLONE SODIUM SUCCINATE
     Dosage: 500 MG, 1X/DAY
     Route: 041
     Dates: start: 20210918, end: 20210920
  5. MEDROL [Suspect]
     Active Substance: METHYLPREDNISOLONE
     Indication: Polymyositis
     Dosage: 16 MG, 1X/DAY
     Route: 048
     Dates: start: 20210819, end: 20210820
  6. ENOXAPARIN SODIUM [Suspect]
     Active Substance: ENOXAPARIN SODIUM
     Indication: Anticoagulant therapy
     Dosage: 0.1 ML, 1X/DAY
     Route: 041
     Dates: start: 20210918, end: 20210919
  7. DEXAMETHASONE SODIUM PHOSPHATE [Suspect]
     Active Substance: DEXAMETHASONE SODIUM PHOSPHATE
     Indication: Polymyositis
     Dosage: 5 MG, 1X/DAY
     Route: 041
     Dates: start: 20210816, end: 20210818
  8. DEXTROSE [Suspect]
     Active Substance: DEXTROSE
     Indication: Polymyositis
     Dosage: 50 ML, 2X/DAY
     Route: 041
     Dates: start: 20210906, end: 20210910
  9. DEXTROSE [Suspect]
     Active Substance: DEXTROSE
     Dosage: 100 ML, 1X/DAY
     Route: 041
     Dates: start: 20210918, end: 20210920
  10. PREDNISONE ACETATE [Suspect]
     Active Substance: PREDNISONE ACETATE
     Indication: Polymyositis
     Dosage: 40 MG, 1X/DAY
     Route: 048
     Dates: start: 20210910, end: 20210917
  11. SODIUM CHLORIDE [Suspect]
     Active Substance: SODIUM CHLORIDE
     Indication: Polymyositis
     Dosage: 100 ML, 1X/DAY
     Route: 041
     Dates: start: 20210816, end: 20210818
  12. SODIUM CHLORIDE [Suspect]
     Active Substance: SODIUM CHLORIDE
     Dosage: 100 ML, 1X/DAY
     Route: 041
     Dates: start: 20210831, end: 20210904
  13. SODIUM CHLORIDE [Suspect]
     Active Substance: SODIUM CHLORIDE
     Dosage: 250 ML, 1X/DAY
     Route: 041
     Dates: start: 20210917, end: 20210917

REACTIONS (1)
  - Haematochezia [Recovered/Resolved]

NARRATIVE: CASE EVENT DATE: 20210920
